FAERS Safety Report 10073620 (Version 2)
Quarter: 2014Q2

REPORT INFORMATION
  Report Type: Report from Study
  Country: DE (occurrence: DE)
  Receive Date: 20140411
  Receipt Date: 20140416
  Transmission Date: 20141212
  Serious: Yes (Hospitalization)
  Sender: FDA-Public Use
  Company Number: PHHY2014DE044018

PATIENT
  Sex: Female
  Weight: 100 kg

DRUGS (17)
  1. FTY 720 [Suspect]
     Indication: MULTIPLE SCLEROSIS
     Dosage: 0.5 MG, QD
     Route: 048
     Dates: start: 20120307
  2. LYRICA [Concomitant]
     Indication: NEURALGIA
     Dosage: 225 MG, BID
     Route: 048
     Dates: start: 20120301
  3. LYRICA [Concomitant]
     Indication: MUSCLE SPASTICITY
     Dosage: 225 MG, BID
     Route: 048
     Dates: start: 20131213, end: 20140131
  4. LYRICA [Concomitant]
     Dosage: 300 MG, QD
     Route: 048
     Dates: start: 20140201
  5. BACLOFEN [Concomitant]
     Indication: MUSCLE SPASTICITY
     Dosage: 10 MG, TID
     Route: 048
     Dates: start: 20110101
  6. TOLPERISONE [Concomitant]
     Indication: MUSCLE SPASTICITY
     Dosage: 150 MG, TID
     Route: 048
     Dates: start: 20120101
  7. PANTOPRAZOLE [Concomitant]
     Dosage: 40 MG, QD
     Dates: start: 20110401
  8. CITALOPRAM [Concomitant]
     Dosage: 20 MG, QD
     Dates: start: 20100301
  9. ASS [Concomitant]
     Dosage: 100 MG, QD
     Dates: start: 20130608
  10. METOPROLOL [Concomitant]
     Dosage: 47.5 MG, QD
     Dates: start: 20130608
  11. PRASUGREL [Concomitant]
     Dosage: 5 MG, QD
     Dates: start: 20130608
  12. RAMIPRIL [Concomitant]
     Dosage: 5 MG, QD
     Dates: start: 20130608
  13. SIMVASTATIN [Concomitant]
     Dosage: 40 MG, QD
     Dates: start: 20130608
  14. FERROSANOL [Concomitant]
     Dates: start: 20140115
  15. PREDNISOLONE [Concomitant]
     Indication: MULTIPLE SCLEROSIS
     Dosage: 500 MG, QD
     Route: 048
     Dates: start: 20131214, end: 20131216
  16. KATADOLON [Concomitant]
     Indication: PAIN
     Dosage: 100 MG, TID
     Route: 048
     Dates: start: 20130806, end: 20130821
  17. COLECALCIFEROL [Concomitant]
     Dosage: 20000 IU, QW
     Dates: start: 20140402

REACTIONS (1)
  - Pancreatitis chronic [Recovered/Resolved]
